FAERS Safety Report 5270518-0 (Version None)
Quarter: 2007Q1

REPORT INFORMATION
  Report Type: 
  Country: None (occurrence: None)
  Receive Date: 20070320
  Receipt Date: 20070306
  Transmission Date: 20070707
  Serious: Yes (Death)
  Sender: FDA-Public Use
  Company Number: US-JNJFOC-20070302419

PATIENT
  Age: 3 Month
  Sex: Male

DRUGS (3)
  1. ACETAMINOPHEN/DEXTROMETHORPHAN HBR/DOXYLAMINE SUCCINATE/PSEUDOEPHEDRIN [Suspect]
     Indication: DRUG USE FOR UNKNOWN INDICATION
  2. NYSTATIN [Concomitant]
     Indication: CANDIDIASIS
     Route: 048
  3. NYSTATIN [Concomitant]
     Indication: DERMATITIS DIAPER
     Route: 061

REACTIONS (1)
  - DRUG TOXICITY [None]
